FAERS Safety Report 4426246-4 (Version None)
Quarter: 2004Q3

REPORT INFORMATION
  Report Type: 
  Country: None (occurrence: None)
  Receive Date: 20040811
  Receipt Date: 20040727
  Transmission Date: 20050211
  Serious: Yes (Other)
  Sender: FDA-Public Use
  Company Number: A-US2004-06980

PATIENT
  Age: 66 Year
  Sex: Female

DRUGS (5)
  1. TRACLEER [Suspect]
     Indication: PULMONARY HYPERTENSION
     Dosage: 125 MG, BID, ORAL
     Route: 048
     Dates: start: 20031214, end: 20040723
  2. TRACLEER [Suspect]
     Dosage: 62.5 MG, BID, ORAL
     Route: 048
     Dates: start: 20031114, end: 20031213
  3. WARFARIN (WARFARIN) [Concomitant]
  4. HYDROCHLOROTHIAZIDE [Concomitant]
  5. NORVASC [Concomitant]

REACTIONS (9)
  - ALANINE AMINOTRANSFERASE INCREASED [None]
  - ANOREXIA [None]
  - ASPARTATE AMINOTRANSFERASE INCREASED [None]
  - BLOOD ALKALINE PHOSPHATASE INCREASED [None]
  - BLOOD BILIRUBIN INCREASED [None]
  - DIZZINESS [None]
  - FATIGUE [None]
  - HEPATIC ENZYME INCREASED [None]
  - NAUSEA [None]
